FAERS Safety Report 5564505-2 (Version None)
Quarter: 2007Q4

REPORT INFORMATION
  Report Type: 
  Country: None (occurrence: None)
  Receive Date: 20071218
  Receipt Date: 20071206
  Transmission Date: 20080405
  Serious: Yes (Hospitalization)
  Sender: FDA-Public Use
  Company Number: JP-ELI_LILLY_AND_COMPANY-JP200712002577

PATIENT
  Sex: Female
  Weight: 60.7 kg

DRUGS (3)
  1. GEMCITABINE HCL [Suspect]
     Indication: BILE DUCT CANCER
     Dosage: 800 MG, OTHER
     Route: 042
     Dates: start: 20070709, end: 20070716
  2. DEPAS [Concomitant]
     Indication: INSOMNIA
     Dosage: 0.5 MG, DAILY (1/D)
     Route: 048
     Dates: start: 20070703
  3. GASTER D /JPN/ [Concomitant]
     Indication: GASTRITIS
     Dosage: 20 MG, DAILY (1/D)
     Route: 048
     Dates: start: 20070703

REACTIONS (2)
  - CHOLANGITIS [None]
  - PLATELET COUNT DECREASED [None]
